FAERS Safety Report 6121391-X (Version None)
Quarter: 2009Q1

REPORT INFORMATION
  Report Type: 
  Country: None (occurrence: None)
  Receive Date: 20090313
  Receipt Date: 20090313
  Transmission Date: 20090719
  Serious: Yes (Other)
  Sender: FDA-Public Use
  Company Number: None

PATIENT
  Age: 28 Year
  Sex: Female
  Weight: 45.3597 kg

DRUGS (1)
  1. YASMIN [Suspect]

REACTIONS (10)
  - ANXIETY [None]
  - BREAST MASS [None]
  - BREAST PAIN [None]
  - DEPRESSION [None]
  - FUNGAL INFECTION [None]
  - MIGRAINE [None]
  - PANIC ATTACK [None]
  - SUICIDE ATTEMPT [None]
  - VISUAL ACUITY REDUCED [None]
  - WEIGHT INCREASED [None]
